FAERS Safety Report 11144149 (Version 1)
Quarter: 2015Q2

REPORT INFORMATION
  Report Type: Spontaneous
  Country: JP (occurrence: JP)
  Receive Date: 20150528
  Receipt Date: 20150528
  Transmission Date: 20150821
  Serious: Yes (Hospitalization)
  Sender: FDA-Public Use
  Company Number: JP-ASTRAZENECA-2015SE50484

PATIENT
  Age: 66 Year
  Sex: Male

DRUGS (2)
  1. FAMOTIDINE. [Suspect]
     Active Substance: FAMOTIDINE
     Indication: MALAISE
     Route: 065
  2. ROSUVASTATIN [Suspect]
     Active Substance: ROSUVASTATIN
     Route: 048

REACTIONS (2)
  - Acute kidney injury [Unknown]
  - Tubulointerstitial nephritis [Unknown]
